FAERS Safety Report 7435477-0 (Version None)
Quarter: 2011Q2

REPORT INFORMATION
  Report Type: 
  Country: None (occurrence: None)
  Receive Date: 20110425
  Receipt Date: 20110412
  Transmission Date: 20111010
  Serious: Yes (Hospitalization, Other)
  Sender: FDA-Public Use
  Company Number: PHHY2011US32052

PATIENT
  Age: 81 Year
  Sex: Female

DRUGS (17)
  1. DIOVAN [Concomitant]
  2. PLAVIX [Concomitant]
  3. METOPROLOL [Suspect]
  4. NORVASC [Suspect]
  5. KLOR-CON [Concomitant]
  6. METFORMIN [Concomitant]
  7. SYNTHROID [Concomitant]
  8. CARVEDILOL [Concomitant]
  9. ISOSORBIDE MONONITRATE [Suspect]
  10. WATER PILLS [Suspect]
  11. AMLODIPINE [Concomitant]
  12. ZOCOR [Concomitant]
  13. ASPIRIN [Concomitant]
  14. GOUT MEDICATIONS [Suspect]
  15. POTASSIUM [Suspect]
  16. ATORVASTATIN [Concomitant]
  17. ALLOPURINOL [Concomitant]

REACTIONS (8)
  - THROMBOSIS [None]
  - MYOCARDIAL INFARCTION [None]
  - KIDNEY INFECTION [None]
  - ERYTHEMA [None]
  - PERIPHERAL ARTERY ANEURYSM [None]
  - BLOOD PRESSURE INCREASED [None]
  - OEDEMA PERIPHERAL [None]
  - HEADACHE [None]
